FAERS Safety Report 4894155-2 (Version None)
Quarter: 2006Q1

REPORT INFORMATION
  Report Type: 
  Country: None (occurrence: None)
  Receive Date: 20060127
  Receipt Date: 20050906
  Transmission Date: 20060701
  Serious: Yes (Other)
  Sender: FDA-Public Use
  Company Number: S05-USA-04023-01

PATIENT
  Age: 42 Year
  Sex: Female
  Weight: 77.3 kg

DRUGS (6)
  1. WELLBUTRIN [Suspect]
     Route: 048
     Dates: start: 20050608, end: 20050728
  2. CITALOPRAM HYDROBROMIDE [Suspect]
     Indication: DEPRESSION
     Route: 048
     Dates: start: 20041201
  3. ESTRADIOL INJ [Concomitant]
  4. ATIVAN [Concomitant]
  5. CLONAZEPAM [Concomitant]
  6. OXYCODONE [Concomitant]
     Dosage: 40MG PER DAY

REACTIONS (3)
  - ANXIETY [None]
  - DEPRESSION [None]
  - DIZZINESS [None]
